FAERS Safety Report 4454457-0 (Version None)
Quarter: 2004Q3

REPORT INFORMATION
  Report Type: 
  Country: None (occurrence: None)
  Receive Date: 20040917
  Receipt Date: 20040917
  Transmission Date: 20050211
  Serious: Yes (Other)
  Sender: FDA-Public Use
  Company Number: None

PATIENT
  Age: 8 Year
  Sex: Male
  Weight: 23.587 kg

DRUGS (4)
  1. STRATTERA [Suspect]
     Indication: ATTENTION DEFICIT/HYPERACTIVITY DISORDER
     Dosage: 18 MG DAILY ORAL
     Route: 048
     Dates: start: 20031210, end: 20031218
  2. STRATTERA [Suspect]
     Dosage: 10 MG DAILY ORAL
     Route: 048
     Dates: start: 20031221, end: 20040125
  3. SINGULAIR [Concomitant]
  4. CLARITIN [Concomitant]

REACTIONS (5)
  - ABNORMAL BEHAVIOUR [None]
  - DYSARTHRIA [None]
  - MIDDLE INSOMNIA [None]
  - MOOD SWINGS [None]
  - SPEECH DISORDER [None]
